FAERS Safety Report 25543630 (Version 1)
Quarter: 2025Q3

REPORT INFORMATION
  Report Type: Spontaneous
  Country: EU (occurrence: EU)
  Receive Date: 20250711
  Receipt Date: 20250711
  Transmission Date: 20251021
  Serious: Yes (Hospitalization)
  Sender: RANBAXY
  Company Number: EU-SUN PHARMACEUTICAL INDUSTRIES LTD-2025RR-516463

PATIENT
  Age: 31 Year
  Sex: Female

DRUGS (2)
  1. TEMOZOLOMIDE [Interacting]
     Active Substance: TEMOZOLOMIDE
     Indication: Astrocytoma
     Route: 048
     Dates: start: 20240815, end: 20240926
  2. ZUCLOPENTHIXOL ACETATE [Interacting]
     Active Substance: ZUCLOPENTHIXOL ACETATE
     Indication: Obsessive-compulsive disorder
     Route: 030
     Dates: start: 2018, end: 20240902

REACTIONS (1)
  - Pancytopenia [Recovering/Resolving]

NARRATIVE: CASE EVENT DATE: 20240917
